FAERS Safety Report 17433885 (Version 2)
Quarter: 2020Q1

REPORT INFORMATION
  Report Type: Spontaneous
  Country: KR (occurrence: KR)
  Receive Date: 20200219
  Receipt Date: 20200225
  Transmission Date: 20200409
  Serious: Yes (Death, Life-Threatening, Hospitalization, Other)
  Sender: FDA-Public Use
  Company Number: KR-ACCORD-172812

PATIENT
  Age: 65 Year
  Sex: Female
  Weight: 56.7 kg

DRUGS (9)
  1. INTRAVENOUS IMMUNOGLOBULIN [Concomitant]
     Active Substance: HUMAN IMMUNOGLOBULIN G
     Indication: PEMPHIGUS
     Dosage: 27.5 G/DAY FOR 4 DAYS, MIXED WITH 500 ML DEXTROSE 5% SOLUTION + IV INFUSION (80-120ML/HR)
     Route: 041
     Dates: start: 20180728, end: 20180731
  2. DEXTROSE 5% [Concomitant]
     Active Substance: DEXTROSE
     Indication: PEMPHIGUS
     Dosage: 500 ML DEXTROSE 5% SOLUTION + IV INFUSION (80-120ML/HR)
     Route: 041
     Dates: start: 20180728, end: 20180731
  3. SODIUM CHLORIDE. [Concomitant]
     Active Substance: SODIUM CHLORIDE
     Indication: PEMPHIGUS
     Dosage: 1000MG RITUXIMAB MIXED WITH 500ML NORMAL SALINE + IV INFUSION (80ML/HR) ?SOLUTION FOR INFUSION
     Route: 041
     Dates: start: 20180810, end: 20180823
  4. MYCOPHENOLIC ACID. [Suspect]
     Active Substance: MYCOPHENOLIC ACID
     Indication: PEMPHIGUS
     Dosage: STRENGTH : 500 MG
     Route: 048
     Dates: start: 20180726, end: 20181105
  5. SOLONDO 5 MG [Suspect]
     Active Substance: PREDNISOLONE
     Indication: PEMPHIGUS
     Dosage: AFTER A MEAL
     Route: 048
     Dates: start: 20180726, end: 20181007
  6. TRUXIMA [Suspect]
     Active Substance: RITUXIMAB-ABBS
     Indication: PEMPHIGUS
     Dosage: STRENGTH : 500 MG, 2 VIAL (1,000MG) MIXED WITH 500ML NORMAL SALINE + IV INFUSION (80ML/HR)
     Route: 041
     Dates: start: 20180810, end: 20180823
  7. SOLONDO 5 MG [Suspect]
     Active Substance: PREDNISOLONE
     Indication: PEMPHIGUS
     Dosage: AFTER A MEAL
     Route: 048
     Dates: start: 20180726, end: 20181007
  8. TRUXIMA [Suspect]
     Active Substance: RITUXIMAB-ABBS
     Indication: PEMPHIGUS
     Dosage: STRENGTH : 500 MG, 2 VIAL (1,000MG) MIXED WITH 500ML NORMAL SALINE + IV INFUSION (80ML/HR)
     Route: 041
     Dates: start: 20180726, end: 20180809
  9. SODIUM CHLORIDE. [Concomitant]
     Active Substance: SODIUM CHLORIDE
     Indication: PEMPHIGUS
     Dosage: 1000MG RITUXIMAB MIXED WITH 500ML NORMAL SALINE + IV INFUSION (80ML/HR) ?SOLUTION FOR INFUSION
     Route: 041
     Dates: start: 20180727, end: 20180809

REACTIONS (2)
  - Acute hepatic failure [Recovering/Resolving]
  - Hepatitis B reactivation [Recovering/Resolving]

NARRATIVE: CASE EVENT DATE: 20181007
